FAERS Safety Report 9808789 (Version 1)
Quarter: 2014Q1

REPORT INFORMATION
  Report Type: Spontaneous
  Country: FR (occurrence: FR)
  Receive Date: 20140110
  Receipt Date: 20140110
  Transmission Date: 20141002
  Serious: Yes (Hospitalization)
  Sender: FDA-Public Use
  Company Number: FR-PFIZER INC-2014002961

PATIENT
  Age: 49 Year
  Sex: Male
  Weight: 57 kg

DRUGS (9)
  1. ANSATIPINE [Suspect]
     Indication: DISSEMINATED TUBERCULOSIS
     Dosage: 150 MG, 1X/DAY
     Route: 048
     Dates: start: 201302
  2. RIMIFON [Suspect]
     Indication: DISSEMINATED TUBERCULOSIS
     Dosage: 200 MG, 1X/DAY
     Route: 048
     Dates: start: 201302
  3. PREZISTA [Concomitant]
     Indication: ANTIRETROVIRAL THERAPY
     Dosage: UNK
     Dates: start: 201207
  4. NORVIR [Concomitant]
     Indication: ANTIRETROVIRAL THERAPY
     Dosage: UNK
     Dates: start: 201207
  5. TRUVADA [Concomitant]
     Indication: ANTIRETROVIRAL THERAPY
     Dosage: UNK
     Dates: start: 201207
  6. INEXIUM /01479302/ [Concomitant]
     Dosage: UNK
  7. KEPPRA [Concomitant]
     Dosage: 500 MG, 2X/DAY
  8. STILNOX [Concomitant]
     Dosage: UNK
  9. SEROPLEX [Concomitant]
     Dosage: 20 MG, DAILY

REACTIONS (2)
  - Systemic lupus erythematosus [Not Recovered/Not Resolved]
  - Arthralgia [Not Recovered/Not Resolved]
